FAERS Safety Report 6715235-2 (Version None)
Quarter: 2010Q2

REPORT INFORMATION
  Report Type: 
  Country: None (occurrence: None)
  Receive Date: 20100507
  Receipt Date: 20100504
  Transmission Date: 20101027
  Serious: Yes (Other)
  Sender: FDA-Public Use
  Company Number: US-PFIZER INC-2010038577

PATIENT
  Sex: Female
  Weight: 58.957 kg

DRUGS (3)
  1. CELEBREX [Suspect]
     Indication: ARTHRALGIA
     Dosage: 200 MG, 1X/DAY
     Route: 048
     Dates: start: 20090101, end: 20100201
  2. LEXAPRO [Concomitant]
     Dosage: 10 MG, 1X/DAY
  3. OMEPRAZOLE [Concomitant]
     Dosage: UNK

REACTIONS (5)
  - BACK PAIN [None]
  - FATIGUE [None]
  - MIGRAINE [None]
  - MUSCULAR WEAKNESS [None]
  - TOOTHACHE [None]
